FAERS Safety Report 12729329 (Version 1)
Quarter: 2016Q3

REPORT INFORMATION
  Report Type: Spontaneous
  Country: GB (occurrence: GB)
  Receive Date: 20160909
  Receipt Date: 20160909
  Transmission Date: 20161109
  Serious: Yes (Other)
  Sender: FDA-Public Use
  Company Number: GB-MYLANLABS-2016M1037640

PATIENT

DRUGS (2)
  1. TAMOXIFEN [Suspect]
     Active Substance: TAMOXIFEN
     Indication: BREAST CANCER
     Dosage: 20 MG, QD
     Dates: start: 20140221
  2. FULTIUM D3 [Concomitant]
     Indication: BONE DISORDER
     Dosage: ONGOING
     Route: 048
     Dates: start: 20160625

REACTIONS (1)
  - Muscle spasms [Not Recovered/Not Resolved]
